FAERS Safety Report 7024999-2 (Version None)
Quarter: 2010Q4

REPORT INFORMATION
  Report Type: 
  Country: None (occurrence: None)
  Receive Date: 20101001
  Receipt Date: 20100910
  Transmission Date: 20110411
  Serious: No
  Sender: FDA-Public Use
  Company Number: US-NOVEN-10US001378

PATIENT
  Sex: Male
  Weight: 99.773 kg

DRUGS (4)
  1. FENTANYL [Suspect]
     Indication: PAIN
     Dosage: 75 UG/HR, EVERY 48 HOURS
     Route: 062
     Dates: start: 20100901, end: 20100901
  2. PREGABALIN [Concomitant]
     Indication: CONGENITAL NEUROPATHY
     Route: 048
  3. METHADONE [Concomitant]
     Indication: CONGENITAL NEUROPATHY
     Route: 048
  4. CYMBALTA [Concomitant]
     Indication: DEPRESSION
     Route: 048

REACTIONS (1)
  - DRUG INEFFECTIVE [None]
